FAERS Safety Report 22040350 (Version 1)
Quarter: 2023Q1

REPORT INFORMATION
  Report Type: Spontaneous
  Country: TW (occurrence: TW)
  Receive Date: 20230227
  Receipt Date: 20230227
  Transmission Date: 20230418
  Serious: Yes (Other)
  Sender: FDA-Public Use
  Company Number: TW-MYLANLABS-2023M1020543

PATIENT
  Age: 83 Year
  Sex: Female

DRUGS (6)
  1. VORICONAZOLE [Suspect]
     Active Substance: VORICONAZOLE
     Indication: Histoplasmosis
     Dosage: 100 MILLIGRAM, BID
     Route: 065
  2. VORICONAZOLE [Suspect]
     Active Substance: VORICONAZOLE
     Indication: Pleural disorder
  3. VORICONAZOLE [Suspect]
     Active Substance: VORICONAZOLE
     Indication: Lung disorder
  4. POSACONAZOLE [Suspect]
     Active Substance: POSACONAZOLE
     Indication: Histoplasmosis
     Dosage: 300 MILLIGRAM, QD
     Route: 048
  5. POSACONAZOLE [Suspect]
     Active Substance: POSACONAZOLE
     Indication: Pleural disorder
  6. POSACONAZOLE [Suspect]
     Active Substance: POSACONAZOLE
     Indication: Lung disorder

REACTIONS (2)
  - Drug ineffective [Unknown]
  - Disease progression [Unknown]
